FAERS Safety Report 13121355 (Version 2)
Quarter: 2017Q1

REPORT INFORMATION
  Report Type: Spontaneous
  Country: FI (occurrence: FI)
  Receive Date: 20170117
  Receipt Date: 20170126
  Transmission Date: 20170428
  Serious: Yes (Death, Other)
  Sender: FDA-Public Use
  Company Number: FI-009507513-1701FIN004911

PATIENT
  Age: 68 Year
  Sex: Male

DRUGS (3)
  1. KEYTRUDA [Suspect]
     Active Substance: PEMBROLIZUMAB
     Indication: MALIGNANT MELANOMA
     Dosage: 2 MG/KG OF BODY WEIGHT
     Dates: start: 201609, end: 201611
  2. TAXOL [Concomitant]
     Active Substance: PACLITAXEL
  3. CARBOPLATIN. [Concomitant]
     Active Substance: CARBOPLATIN

REACTIONS (2)
  - Lung infection [Fatal]
  - Systemic infection [Fatal]

NARRATIVE: CASE EVENT DATE: 20170109
